FAERS Safety Report 8304370-3 (Version None)
Quarter: 2012Q2

REPORT INFORMATION
  Report Type: 
  Country: None (occurrence: None)
  Receive Date: 20120423
  Receipt Date: 20120409
  Transmission Date: 20120825
  Serious: Yes (Other)
  Sender: FDA-Public Use
  Company Number: US-ELI_LILLY_AND_COMPANY-US201203004214

PATIENT
  Age: 16 Year
  Sex: Male
  Weight: 50.8 kg

DRUGS (2)
  1. STRATTERA [Suspect]
     Dosage: 60 MG, QD
     Route: 048
     Dates: end: 20120316
  2. STRATTERA [Suspect]
     Indication: ATTENTION DEFICIT/HYPERACTIVITY DISORDER
     Dosage: 40 MG, UNK
     Dates: start: 20120207

REACTIONS (1)
  - SUPRAVENTRICULAR TACHYCARDIA [None]
